FAERS Safety Report 19270353 (Version 10)
Quarter: 2023Q2

REPORT INFORMATION
  Report Type: Spontaneous
  Country: US (occurrence: US)
  Receive Date: 20210518
  Receipt Date: 20230601
  Transmission Date: 20230721
  Serious: Yes (Hospitalization, Other)
  Sender: FDA-Public Use
  Company Number: US-PFIZER INC-2021522905

PATIENT
  Age: 63 Year
  Sex: Female

DRUGS (3)
  1. XELJANZ XR [Suspect]
     Active Substance: TOFACITINIB CITRATE
     Indication: Rheumatoid arthritis
     Dosage: 11 MG, 1X/DAY
     Route: 048
     Dates: start: 2020
  2. XELJANZ XR [Suspect]
     Active Substance: TOFACITINIB CITRATE
     Dosage: 11 MG, DAILY
     Route: 048
     Dates: start: 2021
  3. ETODOLAC [Concomitant]
     Active Substance: ETODOLAC
     Dosage: UNK
     Dates: end: 2021

REACTIONS (32)
  - Nephrolithiasis [Unknown]
  - Eyelid infection [Unknown]
  - Drug ineffective [Unknown]
  - Product dose omission issue [Unknown]
  - Arthralgia [Not Recovered/Not Resolved]
  - Back pain [Unknown]
  - Sensitivity to weather change [Unknown]
  - Malaise [Unknown]
  - Stomatitis [Unknown]
  - Memory impairment [Unknown]
  - Illness [Unknown]
  - Joint stiffness [Unknown]
  - Oropharyngeal pain [Unknown]
  - Headache [Not Recovered/Not Resolved]
  - Anosmia [Unknown]
  - Ageusia [Unknown]
  - Back pain [Unknown]
  - Gait disturbance [Unknown]
  - Respiratory tract infection [Unknown]
  - Fatigue [Unknown]
  - Sneezing [Unknown]
  - Diarrhoea [Recovered/Resolved]
  - Dizziness [Unknown]
  - Condition aggravated [Recovered/Resolved]
  - COVID-19 [Not Recovered/Not Resolved]
  - Dysphonia [Not Recovered/Not Resolved]
  - Asthenia [Not Recovered/Not Resolved]
  - Hypoacusis [Not Recovered/Not Resolved]
  - Brain fog [Not Recovered/Not Resolved]
  - Pollakiuria [Unknown]
  - Frequent bowel movements [Unknown]
  - Urinary tract infection [Recovered/Resolved]

NARRATIVE: CASE EVENT DATE: 20201101
